FAERS Safety Report 13560058 (Version 1)
Quarter: 2017Q2

REPORT INFORMATION
  Report Type: Spontaneous
  Country: US (occurrence: US)
  Receive Date: 20170518
  Receipt Date: 20170518
  Transmission Date: 20170830
  Serious: Yes (Hospitalization)
  Sender: FDA-Public Use
  Company Number: US-ELI_LILLY_AND_COMPANY-US201705003089

PATIENT
  Age: 84 Year
  Sex: Male

DRUGS (7)
  1. HUMULIN R [Suspect]
     Active Substance: INSULIN HUMAN
     Dosage: 3-4 U, EACH EVENING
     Route: 065
     Dates: start: 20170425, end: 20170501
  2. HUMALOG [Suspect]
     Active Substance: INSULIN LISPRO
     Dosage: 3-4 U, EACH EVENING SLIDING SCALE
     Route: 065
     Dates: start: 1992
  3. HUMULIN R [Suspect]
     Active Substance: INSULIN HUMAN
     Dosage: 4 U, EACH MORNING
     Route: 065
     Dates: start: 20170425, end: 20170501
  4. HUMULIN R [Suspect]
     Active Substance: INSULIN HUMAN
     Dosage: 4 U, EACH MORNING
     Route: 065
     Dates: start: 20170504
  5. HUMALOG [Suspect]
     Active Substance: INSULIN LISPRO
     Indication: TYPE 2 DIABETES MELLITUS
     Dosage: 2-4 U, EACH MORNING SLIDING SCALE
     Route: 065
     Dates: start: 1992
  6. HUMULIN R [Suspect]
     Active Substance: INSULIN HUMAN
     Indication: TYPE 2 DIABETES MELLITUS
     Dosage: UNK, UNKNOWN
     Route: 065
     Dates: start: 1992
  7. HUMULIN R [Suspect]
     Active Substance: INSULIN HUMAN
     Dosage: 3-4 U, EACH EVENING
     Route: 065
     Dates: start: 20170504

REACTIONS (4)
  - Blood glucose increased [Unknown]
  - Chills [Unknown]
  - Viral infection [Unknown]
  - Pyrexia [Unknown]

NARRATIVE: CASE EVENT DATE: 20170428
